FAERS Safety Report 13650367 (Version 2)
Quarter: 2017Q2

REPORT INFORMATION
  Report Type: Report from Study
  Country: KR (occurrence: KR)
  Receive Date: 20170614
  Receipt Date: 20170621
  Transmission Date: 20170830
  Serious: No
  Sender: FDA-Public Use
  Company Number: KR-AMGEN-KORSL2017089018

PATIENT
  Sex: Female

DRUGS (1)
  1. KYPROLIS [Suspect]
     Active Substance: CARFILZOMIB
     Indication: PLASMA CELL MYELOMA
     Dosage: UNK
     Route: 065
     Dates: start: 20170509

REACTIONS (4)
  - Head injury [Unknown]
  - Pain [Unknown]
  - Malaise [Unknown]
  - Fall [Unknown]

NARRATIVE: CASE EVENT DATE: 201706
